FAERS Safety Report 6070813-1 (Version None)
Quarter: 2009Q1

REPORT INFORMATION
  Report Type: 
  Country: None (occurrence: None)
  Receive Date: 20090209
  Receipt Date: 20080729
  Transmission Date: 20090719
  Serious: No
  Sender: FDA-Public Use
  Company Number: A0739877A

PATIENT
  Age: 22 Year
  Sex: Female

DRUGS (3)
  1. PAXIL [Suspect]
     Indication: DEPRESSION
     Dosage: 20MG UNKNOWN
     Route: 048
     Dates: start: 19880101, end: 19880101
  2. LEVOTHYROXINE SODIUM [Concomitant]
  3. MULTIPLE MEDICATIONS [Concomitant]

REACTIONS (1)
  - RASH [None]
